FAERS Safety Report 8910115 (Version 1)
Quarter: 2012Q4

REPORT INFORMATION
  Report Type: 
  Country: US (occurrence: US)
  Receive Date: 20121114
  Receipt Date: 20121114
  Transmission Date: 20130627
  Serious: Yes (Other)
  Sender: FDA-Public Use
  Company Number: US-BAYER-2012-119315

PATIENT
  Sex: Male

DRUGS (8)
  1. BAYER GENUINE ASPIRIN ORIGINAL STRENGTH [Suspect]
  2. DURAGESIC [Concomitant]
  3. GEMFIBROZIL [Concomitant]
  4. ATENOLOL [Concomitant]
  5. MORPHINE SULFATE [Concomitant]
  6. HYDROCODONE [Concomitant]
  7. CREON [PANCREATIN] [Concomitant]
     Indication: DIGESTION IMPAIRED
  8. DEXAMETHASONE [Concomitant]

REACTIONS (1)
  - Malignant melanoma [None]
